FAERS Safety Report 4424399-5 (Version None)
Quarter: 2004Q3

REPORT INFORMATION
  Report Type: 
  Country: None (occurrence: None)
  Receive Date: 20040812
  Receipt Date: 20040802
  Transmission Date: 20050211
  Serious: Yes (Other)
  Sender: FDA-Public Use
  Company Number: US-JNJFOC-20040603102

PATIENT
  Sex: Male
  Weight: 20 kg

DRUGS (9)
  1. RISPERDAL [Suspect]
     Indication: CHILD NEGLECT
     Route: 049
     Dates: start: 20040301, end: 20040609
  2. RISPERDAL [Suspect]
     Dosage: 0.125MG IN AM/0.25MG AT HS
     Route: 049
     Dates: start: 20040301, end: 20040609
  3. CONCERTA [Suspect]
     Dates: start: 20040501, end: 20040607
  4. CLONIDINE HCL [Concomitant]
     Dates: start: 20020701
  5. CLONIDINE HCL [Concomitant]
     Indication: INSOMNIA
     Dates: start: 20020701
  6. ZYRTEC [Concomitant]
     Route: 049
     Dates: start: 20040512, end: 20040607
  7. PEPCID [Concomitant]
  8. NASONEX [Concomitant]
     Dosage: 50MCG
     Route: 055
     Dates: start: 20040512, end: 20040607
  9. FLOVENT [Concomitant]
     Dosage: 2 PUFFS AS NEEDED
     Route: 055
     Dates: start: 20040512, end: 20040607

REACTIONS (2)
  - ARTHRITIS [None]
  - SERUM SICKNESS [None]
